FAERS Safety Report 23117781 (Version 1)
Quarter: 2023Q4

REPORT INFORMATION
  Report Type: Spontaneous
  Country: KR (occurrence: KR)
  Receive Date: 20231027
  Receipt Date: 20231027
  Transmission Date: 20240110
  Serious: Yes (Other)
  Sender: FDA-Public Use
  Company Number: KR-GUERBET / KOREA-KR-20230022

PATIENT
  Age: 54 Year
  Sex: Male

DRUGS (3)
  1. LIPIODOL [Suspect]
     Active Substance: ETHIODIZED OIL
     Indication: Transcatheter arterial chemoembolisation
     Dosage: A MIXTURE OF 5 ML OF LIPIODOL AND 20 MG OF DOXORUBICIN, FOLLOWED BY GELATIN SPONGE EMBOLIZATION.
     Route: 013
  2. DOXORUBICIN [Suspect]
     Active Substance: DOXORUBICIN
     Indication: Transcatheter arterial chemoembolisation
     Dosage: A MIXTURE OF 5 ML OF LIPIODOL AND 20 MG OF DOXORUBICIN, FOLLOWED BY GELATIN SPONGE EMBOLIZATION.
     Route: 013
  3. GELATIN [Suspect]
     Active Substance: GELATIN
     Indication: Transcatheter arterial chemoembolisation
     Dosage: A MIXTURE OF 5 ML OF LIPIODOL AND 20 MG OF DOXORUBICIN, FOLLOWED BY GELATIN SPONGE EMBOLIZATION.
     Route: 013

REACTIONS (1)
  - Liver abscess [Unknown]
